FAERS Safety Report 9175829 (Version 1)
Quarter: 2013Q1

REPORT INFORMATION
  Report Type: Spontaneous
  Country: US (occurrence: US)
  Receive Date: 20130320
  Receipt Date: 20130320
  Transmission Date: 20140127
  Serious: Yes (Hospitalization)
  Sender: FDA-Public Use
  Company Number: US-PFIZER INC-2013087861

PATIENT
  Age: 48 Year
  Sex: Female

DRUGS (4)
  1. ZYVOX [Suspect]
     Dosage: 600 MG, UNK
     Dates: start: 20130213
  2. FENTANYL [Suspect]
     Dosage: 100 UG, PER HOUR
     Route: 042
  3. PROZAC [Suspect]
     Dosage: 20 MG, 2X/DAY
  4. SEROQUEL [Suspect]
     Dosage: 25 MG, 2X/DAY

REACTIONS (5)
  - Serotonin syndrome [Unknown]
  - Heart rate increased [Unknown]
  - Blood pressure increased [Unknown]
  - Pyrexia [Unknown]
  - Blood pressure abnormal [Unknown]
